FAERS Safety Report 5491660-5 (Version None)
Quarter: 2007Q4

REPORT INFORMATION
  Report Type: 
  Country: None (occurrence: None)
  Receive Date: 20071022
  Receipt Date: 20071011
  Transmission Date: 20080405
  Serious: Yes (Life-Threatening, Hospitalization, Disabling, Other)
  Sender: FDA-Public Use
  Company Number: DE-BAYER-200711127BVD

PATIENT
  Age: 64 Year
  Sex: Male
  Weight: 70 kg

DRUGS (3)
  1. AVELOX [Suspect]
     Indication: PNEUMONIA
     Route: 048
     Dates: start: 20070605, end: 20070616
  2. CONCOR COR [Concomitant]
     Route: 048
  3. ASPIRIN [Concomitant]
     Route: 048

REACTIONS (5)
  - DIARRHOEA HAEMORRHAGIC [None]
  - GLOMERULONEPHRITIS RAPIDLY PROGRESSIVE [None]
  - HENOCH-SCHONLEIN PURPURA [None]
  - RECTAL TENESMUS [None]
  - RENAL FAILURE ACUTE [None]
